FAERS Safety Report 13085973 (Version 9)
Quarter: 2020Q2

REPORT INFORMATION
  Report Type: Spontaneous
  Country: US (occurrence: US)
  Receive Date: 20170104
  Receipt Date: 20200428
  Transmission Date: 20200713
  Serious: Yes (Hospitalization, Other)
  Sender: FDA-Public Use
  Company Number: US-PFIZER INC-2016601568

PATIENT
  Age: 56 Year
  Sex: Male
  Weight: 67.13 kg

DRUGS (4)
  1. GABAPENTIN. [Concomitant]
     Active Substance: GABAPENTIN
     Dosage: UNK
  2. HYDROCODONE [Concomitant]
     Active Substance: HYDROCODONE
     Indication: PAIN
     Dosage: UNK
     Dates: start: 2006
  3. LYRICA [Suspect]
     Active Substance: PREGABALIN
     Indication: ARTHRALGIA
     Dosage: UNK
     Dates: start: 2006, end: 201608
  4. LYRICA [Suspect]
     Active Substance: PREGABALIN
     Indication: PAIN

REACTIONS (11)
  - Abnormal behaviour [Not Recovered/Not Resolved]
  - Anger [Unknown]
  - Derealisation [Unknown]
  - Homicidal ideation [Unknown]
  - Personality change [Not Recovered/Not Resolved]
  - Gambling [Unknown]
  - Toxicity to various agents [Unknown]
  - Impulsive behaviour [Unknown]
  - Brain injury [Unknown]
  - Emotional disorder [Unknown]
  - Aggression [Unknown]
